APPROVED DRUG PRODUCT: NORMOCARB HF 35
Active Ingredient: MAGNESIUM CHLORIDE; SODIUM BICARBONATE; SODIUM CHLORIDE
Strength: 0.21GM/100ML;3.97GM/100ML;8.3GM/100ML
Dosage Form/Route: SOLUTION;INJECTION
Application: N021910 | Product #002
Applicant: DIALYSIS SUPPLIES INC
Approved: Jul 26, 2006 | RLD: Yes | RS: Yes | Type: RX